FAERS Safety Report 7274739-7 (Version None)
Quarter: 2011Q1

REPORT INFORMATION
  Report Type: 
  Country: None (occurrence: None)
  Receive Date: 20110204
  Receipt Date: 20110124
  Transmission Date: 20110831
  Serious: Yes (Other)
  Sender: FDA-Public Use
  Company Number: US-PERRIGO-11US000709

PATIENT
  Sex: Male
  Weight: 18.594 kg

DRUGS (2)
  1. ACETAMINOPHEN [Suspect]
     Indication: ACCIDENTAL EXPOSURE
     Dosage: 15 ML, SINGLE
     Route: 048
     Dates: start: 20101218, end: 20101218
  2. ACETAMINOPHEN [Suspect]
     Indication: NASOPHARYNGITIS
     Dosage: AS DIRECTED ON LABEL, UNK
     Route: 048

REACTIONS (3)
  - ACCIDENTAL OVERDOSE [None]
  - ACCIDENTAL DRUG INTAKE BY CHILD [None]
  - BLOOD TEST ABNORMAL [None]
